FAERS Safety Report 10086651 (Version 1)
Quarter: 2014Q2

REPORT INFORMATION
  Report Type: Spontaneous
  Country: US (occurrence: None)
  Receive Date: 20140417
  Receipt Date: 20140417
  Transmission Date: 20141212
  Serious: Yes (Other)
  Sender: FDA-Public Use
  Company Number: None

PATIENT
  Age: 75 Year
  Sex: Female
  Weight: 85.73 kg

DRUGS (1)
  1. PRAZOSIN [Suspect]
     Indication: HYPERTENSION
     Route: 048
     Dates: start: 20140411, end: 20140413

REACTIONS (1)
  - Urticaria [None]
